FAERS Safety Report 5909936-3 (Version None)
Quarter: 2008Q4

REPORT INFORMATION
  Report Type: 
  Country: None (occurrence: None)
  Receive Date: 20081007
  Receipt Date: 20080929
  Transmission Date: 20090506
  Serious: Yes (Other)
  Sender: FDA-Public Use
  Company Number: IE-TYCO HEALTHCARE/MALLINCKRODT-T200801570

PATIENT

DRUGS (2)
  1. OPTIRAY 300 [Suspect]
     Indication: COMPUTERISED TOMOGRAM ABDOMEN
     Dosage: 90 ML, SINGLE
     Route: 042
     Dates: start: 20080910, end: 20080910
  2. GASTROGRAFIN                       /00025901/ [Concomitant]

REACTIONS (2)
  - RASH [None]
  - VOMITING [None]
